FAERS Safety Report 9981272 (Version 1)
Quarter: 2014Q1

REPORT INFORMATION
  Report Type: Spontaneous
  Country: US (occurrence: None)
  Receive Date: 20140305
  Receipt Date: 20140305
  Transmission Date: 20141002
  Serious: Yes (Other)
  Sender: FDA-Public Use
  Company Number: 2014SA024539

PATIENT
  Sex: Male

DRUGS (1)
  1. ROLAIDS ULTRA STRENGTH FRUIT [Suspect]
     Dates: start: 20140221

REACTIONS (1)
  - Tooth fracture [None]
